FAERS Safety Report 7452264-8 (Version None)
Quarter: 2011Q2

REPORT INFORMATION
  Report Type: 
  Country: None (occurrence: None)
  Receive Date: 20110425
  Receipt Date: 20110309
  Transmission Date: 20111010
  Serious: Yes (Death, Hospitalization)
  Sender: FDA-Public Use
  Company Number: WAES 1104USA02858

PATIENT
  Age: 60 Year
  Sex: Female

DRUGS (3)
  1. ALUVIA [Concomitant]
  2. SULFAMETHOXAZOLE TRIMETHOPRIM [Concomitant]
  3. TAB RALTEGRAVIR POTASSIUM [Suspect]
     Indication: HIV INFECTION
     Dosage: PO
     Route: 048
     Dates: start: 20101206, end: 20110410

REACTIONS (20)
  - ANAEMIA OF CHRONIC DISEASE [None]
  - CHILLS [None]
  - CHEST PAIN [None]
  - BLOOD BILIRUBIN INCREASED [None]
  - DECREASED APPETITE [None]
  - ABDOMINAL TENDERNESS [None]
  - MONOCYTE PERCENTAGE INCREASED [None]
  - JAUNDICE [None]
  - PYREXIA [None]
  - PALLOR [None]
  - REFUSAL OF TREATMENT BY PATIENT [None]
  - WHITE BLOOD CELL COUNT INCREASED [None]
  - RENAL FAILURE ACUTE [None]
  - NEOPLASM MALIGNANT [None]
  - CACHEXIA [None]
  - ASTHENIA [None]
  - HEADACHE [None]
  - BREATH SOUNDS ABNORMAL [None]
  - BACTERIAL SEPSIS [None]
  - WEIGHT DECREASED [None]
